FAERS Safety Report 16150452 (Version 8)
Quarter: 2019Q3

REPORT INFORMATION
  Report Type: Spontaneous
  Country: US (occurrence: US)
  Receive Date: 20190402
  Receipt Date: 20190801
  Transmission Date: 20191004
  Serious: Yes (Hospitalization)
  Sender: FDA-Public Use
  Company Number: US-ACTELION-A-NJ2019-188355

PATIENT
  Sex: Female
  Weight: 50.79 kg

DRUGS (5)
  1. OPSUMIT [Suspect]
     Active Substance: MACITENTAN
     Indication: PULMONARY HYPERTENSION
     Dosage: 10 MG, QD
     Route: 048
  2. WARFARIN [Concomitant]
     Active Substance: WARFARIN
  3. ADCIRCA [Concomitant]
     Active Substance: TADALAFIL
  4. REMODULIN [Suspect]
     Active Substance: TREPROSTINIL
     Indication: PRODUCT USED FOR UNKNOWN INDICATION
     Route: 065
  5. ADEMPAS [Concomitant]
     Active Substance: RIOCIGUAT

REACTIONS (13)
  - Device difficult to use [Unknown]
  - Headache [Unknown]
  - Catheter placement [Unknown]
  - Catheter site infection [Unknown]
  - Hypotension [Unknown]
  - Nausea [Unknown]
  - Hospitalisation [Unknown]
  - Vomiting [Unknown]
  - Device related infection [Unknown]
  - Catheter site haemorrhage [Unknown]
  - Device dislocation [Unknown]
  - Syncope [Unknown]
  - Pulse absent [Unknown]
